FAERS Safety Report 13522209 (Version 1)
Quarter: 2017Q2

REPORT INFORMATION
  Report Type: Spontaneous
  Country: US (occurrence: US)
  Receive Date: 20170508
  Receipt Date: 20170508
  Transmission Date: 20170830
  Serious: Yes (Other)
  Sender: FDA-Public Use
  Company Number: US-GLAXOSMITHKLINE-US2017065707

PATIENT
  Sex: Female

DRUGS (1)
  1. EXCEDRIN [Suspect]
     Active Substance: ACETAMINOPHEN\ASPIRIN\CAFFEINE
     Indication: PRODUCT USED FOR UNKNOWN INDICATION
     Dosage: UNK

REACTIONS (7)
  - Intestinal ulcer [Unknown]
  - Hydrocephalus [Unknown]
  - Weight decreased [Unknown]
  - Vomiting [Unknown]
  - Gastric perforation [Unknown]
  - Headache [Not Recovered/Not Resolved]
  - Surgical vascular shunt [Unknown]
